FAERS Safety Report 9366682 (Version 1)
Quarter: 2013Q2

REPORT INFORMATION
  Report Type: Spontaneous
  Country: FR (occurrence: FR)
  Receive Date: 20130625
  Receipt Date: 20130625
  Transmission Date: 20140414
  Serious: Yes (Disabling)
  Sender: FDA-Public Use
  Company Number: FR-TEVA-415099ISR

PATIENT
  Sex: Female

DRUGS (1)
  1. FUROSEMIDE TEVA 40MG [Suspect]
     Dates: end: 20130610

REACTIONS (3)
  - Paralysis [Unknown]
  - Dyspnoea [Unknown]
  - Heart rate decreased [Unknown]
